FAERS Safety Report 10015659 (Version 2)
Quarter: 2014Q2

REPORT INFORMATION
  Report Type: Spontaneous
  Country: US (occurrence: US)
  Receive Date: 20140317
  Receipt Date: 20140425
  Transmission Date: 20141212
  Serious: No
  Sender: FDA-Public Use
  Company Number: US-PFIZER INC-2014076561

PATIENT
  Age: 73 Year
  Sex: Female
  Weight: 53.97 kg

DRUGS (10)
  1. CELEBREX [Suspect]
     Indication: PAIN
     Dosage: 100 MG IN THE MORNING AND 200 MG (100 MG X 2) AT NIGHT
  2. CELEBREX [Suspect]
     Indication: BACK PAIN
  3. CELEBREX [Suspect]
     Indication: ARTHRALGIA
  4. CELEBREX [Suspect]
     Indication: PAIN IN EXTREMITY
  5. CRESTOR [Concomitant]
     Dosage: UNK
  6. PLAVIX [Concomitant]
     Dosage: UNK
  7. SEROQUEL [Concomitant]
     Indication: MENTAL DISORDER
     Dosage: 100 MG, 2X/DAY
  8. SEROQUEL [Concomitant]
     Indication: SCHIZOAFFECTIVE DISORDER
  9. PROTONIX [Concomitant]
     Dosage: 40 MG, 1X/DAY
  10. LEVOTHYROXINE [Concomitant]
     Indication: HYPOTHYROIDISM
     Dosage: 150 UG

REACTIONS (1)
  - Gastric disorder [Unknown]
